FAERS Safety Report 8844831 (Version 2)
Quarter: 2013Q4

REPORT INFORMATION
  Report Type: Report from Study
  Country: GB (occurrence: GB)
  Receive Date: 20121017
  Receipt Date: 20131121
  Transmission Date: 20140711
  Serious: Yes (Hospitalization)
  Sender: FDA-Public Use
  Company Number: GB-VERTEX PHARMACEUTICAL INC.-000000000000000084

PATIENT
  Age: 40 Year
  Sex: Male
  Weight: 75 kg

DRUGS (4)
  1. VX-950 (TELAPREVIR) [Suspect]
     Indication: HEPATITIS C
     Dosage: 750 MG, TID
     Route: 048
     Dates: start: 20111005, end: 20111228
  2. RIBAVIRIN [Suspect]
     Indication: HEPATITIS C
     Dosage: 600 MG, BID
     Route: 048
  3. RIBAVIRIN [Suspect]
     Dosage: UNK
     Route: 048
  4. PEGYLATED INTERFERON [Concomitant]
     Indication: HEPATITIS C
     Dosage: UNK
     Route: 058

REACTIONS (3)
  - Deep vein thrombosis [Unknown]
  - Haemoglobin decreased [Unknown]
  - Rash [Unknown]
